FAERS Safety Report 7437561-4 (Version None)
Quarter: 2011Q2

REPORT INFORMATION
  Report Type: 
  Country: None (occurrence: None)
  Receive Date: 20110426
  Receipt Date: 20110404
  Transmission Date: 20111010
  Serious: No
  Sender: FDA-Public Use
  Company Number: US-B.I. PHARMACEUTICALS,INC./RIDGEFIELD-2011-BP-09971BP

PATIENT
  Sex: Female

DRUGS (5)
  1. SPIRIVA [Suspect]
     Indication: CHRONIC OBSTRUCTIVE PULMONARY DISEASE
     Dosage: 18 MCG
     Route: 055
  2. PLAVIX [Concomitant]
  3. UNKNOWN MEDICATION [Concomitant]
     Indication: HYPERTENSION
  4. SPIRIVA [Suspect]
     Dosage: 18 MCG
     Route: 048
     Dates: start: 20110301
  5. ADVAIR DISKUS 100/50 [Concomitant]

REACTIONS (3)
  - ABDOMINAL DISCOMFORT [None]
  - ABDOMINAL PAIN UPPER [None]
  - INCORRECT ROUTE OF DRUG ADMINISTRATION [None]
